FAERS Safety Report 21033984 (Version 1)
Quarter: 2022Q3

REPORT INFORMATION
  Report Type: Spontaneous
  Country: US (occurrence: US)
  Receive Date: 20220701
  Receipt Date: 20220701
  Transmission Date: 20221027
  Serious: No
  Sender: FDA-Public Use
  Company Number: US-ALLERGAN-2213019US

PATIENT

DRUGS (2)
  1. DURYSTA [Suspect]
     Active Substance: BIMATOPROST
     Indication: Intraocular pressure increased
     Dosage: 10 ?G, SINGLE
     Route: 031
  2. DURYSTA [Suspect]
     Active Substance: BIMATOPROST
     Indication: Glaucoma

REACTIONS (1)
  - Corneal disorder [Unknown]
